FAERS Safety Report 9785597 (Version 3)
Quarter: 2014Q1

REPORT INFORMATION
  Report Type: Spontaneous
  Country: US (occurrence: US)
  Receive Date: 20131227
  Receipt Date: 20140320
  Transmission Date: 20141002
  Serious: Yes (Hospitalization, Other)
  Sender: FDA-Public Use
  Company Number: US-BAYER-2013-155519

PATIENT
  Age: 23 Year
  Sex: Female
  Weight: 102.4 kg

DRUGS (2)
  1. MIRENA [Suspect]
     Indication: CONTRACEPTION
     Dosage: 20 MCG/24HR, CONT
     Route: 015
     Dates: start: 20071026, end: 200812
  2. VENTOLIN [Concomitant]
     Indication: ASTHMA
     Dosage: UNK
     Route: 045
     Dates: start: 1985, end: 2010

REACTIONS (8)
  - Abortion spontaneous [None]
  - Pregnancy with contraceptive device [None]
  - Uterine perforation [None]
  - Drug ineffective [None]
  - Injury [None]
  - Pain [None]
  - Emotional distress [None]
  - Depression [None]
